FAERS Safety Report 16400669 (Version 2)
Quarter: 2019Q2

REPORT INFORMATION
  Report Type: Report from Study
  Country: US (occurrence: US)
  Receive Date: 20190606
  Receipt Date: 20190626
  Transmission Date: 20190711
  Serious: Yes (Hospitalization)
  Sender: FDA-Public Use
  Company Number: US-ACTELION-A-NJ2019-185150

PATIENT
  Age: 1 Year
  Sex: Male

DRUGS (15)
  1. DIURIL [Concomitant]
     Active Substance: CHLOROTHIAZIDE
     Dosage: 1.4 ML, TID
     Dates: start: 20180408
  2. CLONIDINE. [Concomitant]
     Active Substance: CLONIDINE
     Dosage: 12 MCG, UNK
     Dates: start: 20181106
  3. LASIX [Concomitant]
     Active Substance: FUROSEMIDE
     Dosage: 0.8 MG, BID
     Dates: start: 20180312
  4. BOSENTAN TABLET 32 MG PED US [Suspect]
     Active Substance: BOSENTAN
     Indication: PULMONARY HYPERTENSION
     Dosage: 15.6 MG, BID
     Route: 048
     Dates: start: 20181023
  5. SILDENAFIL. [Concomitant]
     Active Substance: SILDENAFIL
     Dosage: 20 MG, TID, Q8H
     Dates: start: 20181022
  6. DIGOXIN. [Concomitant]
     Active Substance: DIGOXIN
     Dosage: 0.7 ML, BID
     Dates: start: 20180510
  7. DIGOXIN. [Concomitant]
     Active Substance: DIGOXIN
     Dosage: 0.8 ML, Q12HRS
     Dates: start: 20180411
  8. REVATIO [Concomitant]
     Active Substance: SILDENAFIL CITRATE
     Dosage: 14 MG, Q6HRS
     Dates: start: 20181022
  9. EPANED [Concomitant]
     Active Substance: ENALAPRIL MALEATE
     Dosage: 0.8 ML, Q12HRS
     Dates: start: 20180411
  10. BUMEX [Concomitant]
     Active Substance: BUMETANIDE
     Dosage: UNK
  11. BOSENTAN TABLET 32 MG PED US [Suspect]
     Active Substance: BOSENTAN
     Dosage: 16 MG, BID
     Route: 048
  12. PLAVIX [Concomitant]
     Active Substance: CLOPIDOGREL BISULFATE
     Dosage: 3 MG, TID
     Dates: start: 20181026
  13. EPANED [Concomitant]
     Active Substance: ENALAPRIL MALEATE
     Dosage: 0.5 MG, Q12HRS
     Dates: start: 20180510
  14. LOVENOX [Concomitant]
     Active Substance: ENOXAPARIN SODIUM
     Dosage: 14 MG, BID
     Route: 058
     Dates: start: 20180824
  15. PLAVIX [Concomitant]
     Active Substance: CLOPIDOGREL BISULFATE
     Dosage: 0.6 ML, BID

REACTIONS (6)
  - Aortic aneurysm [Recovered/Resolved]
  - Arteriovenous fistula operation [Recovered/Resolved]
  - Cardiac operation [Unknown]
  - Stent placement [Recovered/Resolved]
  - Intra-aortic balloon placement [Recovered/Resolved]
  - Product dose omission [Not Recovered/Not Resolved]

NARRATIVE: CASE EVENT DATE: 20190520
